FAERS Safety Report 13290274 (Version 1)
Quarter: 2017Q1

REPORT INFORMATION
  Report Type: Spontaneous
  Country: TH (occurrence: TH)
  Receive Date: 20170302
  Receipt Date: 20170302
  Transmission Date: 20170428
  Serious: Yes (Death)
  Sender: FDA-Public Use
  Company Number: TH-PFIZER INC-2017091276

PATIENT
  Age: 52 Year
  Sex: Male

DRUGS (1)
  1. XALKORI [Suspect]
     Active Substance: CRIZOTINIB
     Indication: NON-SMALL CELL LUNG CANCER
     Dosage: 500 MG, 1X/DAY
     Route: 048
     Dates: start: 20161102

REACTIONS (1)
  - Death [Fatal]

NARRATIVE: CASE EVENT DATE: 20170224
